FAERS Safety Report 7265978-X (Version None)
Quarter: 2011Q1

REPORT INFORMATION
  Report Type: 
  Country: None (occurrence: None)
  Receive Date: 20110131
  Receipt Date: 20110119
  Transmission Date: 20110831
  Serious: Yes (Other)
  Sender: FDA-Public Use
  Company Number: JP-NOVOPROD-320132

PATIENT
  Age: 59 Year
  Sex: Male
  Weight: 63 kg

DRUGS (4)
  1. VICTOZA [Suspect]
     Indication: TYPE 2 DIABETES MELLITUS
     Dosage: 0.3 MG, QD
     Route: 058
     Dates: start: 20101007
  2. VICTOZA [Suspect]
     Dosage: 0.6 MG, QD
     Route: 058
     Dates: end: 20101020
  3. DRUG FOR INSOMNIA [Concomitant]
     Dosage: 5 MG, QD
  4. ITRIZOLE [Concomitant]
     Indication: ONYCHOMYCOSIS
     Dosage: 100 MG, QD

REACTIONS (1)
  - GAMMA-GLUTAMYLTRANSFERASE INCREASED [None]
